FAERS Safety Report 20794806 (Version 1)
Quarter: 2022Q2

REPORT INFORMATION
  Report Type: Spontaneous
  Country: US (occurrence: US)
  Receive Date: 20220506
  Receipt Date: 20220506
  Transmission Date: 20220720
  Serious: No
  Sender: FDA-Public Use
  Company Number: US-UCBSA-2021043909

PATIENT
  Sex: Female
  Weight: 149 kg

DRUGS (4)
  1. CIMZIA [Suspect]
     Active Substance: CERTOLIZUMAB PEGOL
     Indication: Psoriatic arthropathy
     Dosage: 400 MILLIGRAM, EV 4 WEEKS
     Route: 058
  2. ENBREL [Concomitant]
     Active Substance: ETANERCEPT
     Indication: Product used for unknown indication
  3. AZELASTINE;FLUTICASONE PROPIONATE [Concomitant]
     Indication: Product used for unknown indication
  4. MOBIC [Concomitant]
     Active Substance: MELOXICAM
     Indication: Product used for unknown indication

REACTIONS (7)
  - Cough [Recovering/Resolving]
  - Dry mouth [Unknown]
  - Uvulitis [Unknown]
  - Fungal infection [Unknown]
  - Pain [Unknown]
  - Ocular hyperaemia [Recovered/Resolved]
  - Physiotherapy [Unknown]
